FAERS Safety Report 7340765-2 (Version None)
Quarter: 2011Q1

REPORT INFORMATION
  Report Type: 
  Country: None (occurrence: None)
  Receive Date: 20110301
  Receipt Date: 20110124
  Transmission Date: 20110831
  Serious: Yes (Other)
  Sender: FDA-Public Use
  Company Number: AUR-APL-2010-01278

PATIENT
  Age: 35 Year
  Sex: Male

DRUGS (10)
  1. SERTRALINE HYDROCHLORIDE [Suspect]
  2. CLARITHROMYCIN [Suspect]
  3. CLONAZEPAM [Suspect]
  4. RITONAVIR [Suspect]
     Indication: LENTIVIRUS TEST POSITIVE
  5. ATAZANAVIR [Suspect]
     Indication: LENTIVIRUS TEST POSITIVE
  6. TRUVADA [Suspect]
     Indication: LENTIVIRUS TEST POSITIVE
  7. LEVETIRACETAM [Suspect]
     Indication: PARTIAL SEIZURES
     Dosage: 500MG-BID-ORAL
     Route: 048
  8. RIFABUTIN [Suspect]
     Indication: MYCOBACTERIUM AVIUM COMPLEX INFECTION
  9. LEVETIRACETAM [Suspect]
     Indication: PARTIAL SEIZURES
     Dosage: 1500MG-BID-ORAL
     Route: 048
  10. DAPSONE [Suspect]

REACTIONS (9)
  - ANAEMIA [None]
  - MELAENA [None]
  - BLOOD SMEAR TEST ABNORMAL [None]
  - ASPARTATE AMINOTRANSFERASE INCREASED [None]
  - PANCYTOPENIA [None]
  - HAEMATURIA [None]
  - BLOOD ALBUMIN DECREASED [None]
  - BLOOD ALKALINE PHOSPHATASE INCREASED [None]
  - THROMBOCYTOPENIA [None]
